FAERS Safety Report 9225369 (Version 1)
Quarter: 2013Q2

REPORT INFORMATION
  Report Type: Spontaneous
  Country: IN (occurrence: None)
  Receive Date: 20130409
  Receipt Date: 20130409
  Transmission Date: 20140414
  Serious: Yes (Disabling, Other)
  Sender: FDA-Public Use
  Company Number: 2013P1004457

PATIENT
  Age: 56 Year
  Sex: Male

DRUGS (1)
  1. VALPROATE SODIUM [Suspect]
     Indication: GRAND MAL CONVULSION

REACTIONS (6)
  - Ammonia increased [None]
  - Toxicity to various agents [None]
  - Gaze palsy [None]
  - Parkinsonism [None]
  - Somnolence [None]
  - Cognitive disorder [None]
